FAERS Safety Report 9273908 (Version 1)
Quarter: 2013Q2

REPORT INFORMATION
  Report Type: Spontaneous
  Country: US (occurrence: US)
  Receive Date: 20130506
  Receipt Date: 20130506
  Transmission Date: 20140414
  Serious: No
  Sender: FDA-Public Use
  Company Number: US-AMGEN-USASP2013029884

PATIENT
  Age: 54 Year
  Sex: Female

DRUGS (2)
  1. ENBREL [Suspect]
     Indication: RHEUMATOID ARTHRITIS
     Dosage: 50 MG, QWK
     Dates: start: 20110701
  2. METHOTREXATE [Concomitant]
     Dosage: 0.4 MG, QWK

REACTIONS (2)
  - Malaise [Recovered/Resolved]
  - Visual impairment [Not Recovered/Not Resolved]
